FAERS Safety Report 7639979-3 (Version None)
Quarter: 2011Q3

REPORT INFORMATION
  Report Type: 
  Country: None (occurrence: None)
  Receive Date: 20110727
  Receipt Date: 20110720
  Transmission Date: 20111222
  Serious: Yes (Death, Other)
  Sender: FDA-Public Use
  Company Number: CN-ROCHE-790958

PATIENT
  Age: 64 Year
  Sex: Female
  Weight: 55 kg

DRUGS (2)
  1. BEVACIZUMAB [Suspect]
     Indication: OVARIAN CANCER
     Route: 042
     Dates: start: 20110330, end: 20110701
  2. PLATINUM COMPOUND NOS [Suspect]
     Indication: OVARIAN CANCER
     Route: 042
     Dates: start: 20110330, end: 20110701

REACTIONS (4)
  - IMMUNODEFICIENCY [None]
  - INFECTION [None]
  - WHITE BLOOD CELL COUNT DECREASED [None]
  - INTESTINAL OBSTRUCTION [None]
